FAERS Safety Report 4795785-9 (Version None)
Quarter: 2005Q3

REPORT INFORMATION
  Report Type: 
  Country: None (occurrence: None)
  Receive Date: 20050929
  Receipt Date: 20050830
  Transmission Date: 20060218
  Serious: No
  Sender: FDA-Public Use
  Company Number: 05P-163-0304643-00

PATIENT
  Age: 81 Year
  Sex: Female
  Weight: 77.1115 kg

DRUGS (13)
  1. HUMIRA [Suspect]
     Indication: RHEUMATOID ARTHRITIS
     Dosage: 40 MG, 1 IN 2 WK, SUBCUTANEOUS
     Route: 058
     Dates: start: 20041001, end: 20050828
  2. CALCIUM CARBONATE [Concomitant]
  3. FUROSEMIDE [Concomitant]
  4. ASASANTIN [Concomitant]
  5. PANTOPRAZOLE [Concomitant]
  6. PREDNISONE [Concomitant]
  7. METHOTREXATE [Concomitant]
  8. LEUCOVORIN CALCIUM [Concomitant]
  9. ATORVASTATIN [Concomitant]
  10. MIRTAZAPINE [Concomitant]
  11. TOPOROL [Concomitant]
  12. ZOLPIDEM TARTRATE [Concomitant]
  13. RISEDRONATE SODIUM [Concomitant]

REACTIONS (1)
  - RASH [None]
